APPROVED DRUG PRODUCT: MAGNESIUM SULFATE
Active Ingredient: MAGNESIUM SULFATE
Strength: 10GM/20ML (500MG/ML)
Dosage Form/Route: SOLUTION;INTRAMUSCULAR, INTRAVENOUS
Application: A202411 | Product #001 | TE Code: AP
Applicant: HOSPIRA INC
Approved: May 14, 2015 | RLD: No | RS: No | Type: RX